FAERS Safety Report 13585499 (Version 1)
Quarter: 2017Q2

REPORT INFORMATION
  Report Type: Spontaneous
  Country: FR (occurrence: FR)
  Receive Date: 20170526
  Receipt Date: 20170526
  Transmission Date: 20170830
  Serious: Yes (Hospitalization)
  Sender: FDA-Public Use
  Company Number: FR-PFIZER INC-2017223475

PATIENT
  Age: 74 Year
  Sex: Male

DRUGS (9)
  1. CISPLATIN. [Concomitant]
     Active Substance: CISPLATIN
     Indication: BLADDER CANCER
  2. VERAPAMIL HCL [Concomitant]
     Active Substance: VERAPAMIL HYDROCHLORIDE
  3. SOLU-MEDROL [Suspect]
     Active Substance: METHYLPREDNISOLONE SODIUM SUCCINATE
     Indication: BLADDER CANCER
     Dosage: 120 MG, SINGLE
     Route: 042
     Dates: start: 20170110, end: 20170110
  4. METHOTREXATE. [Concomitant]
     Active Substance: METHOTREXATE
     Indication: BLADDER CANCER
  5. VELBE [Concomitant]
     Active Substance: VINBLASTINE SULFATE
     Indication: BLADDER CANCER
  6. EUCREAS [Concomitant]
     Active Substance: METFORMIN HYDROCHLORIDE\VILDAGLIPTIN
  7. ADRIBLASTINE [Concomitant]
     Active Substance: DOXORUBICIN
     Indication: BLADDER CANCER
  8. LASILIX /00032601/ [Concomitant]
     Active Substance: FUROSEMIDE
     Dosage: UNK
  9. CORTANCYL [Suspect]
     Active Substance: PREDNISONE
     Indication: BLADDER CANCER
     Dosage: 40 MG, DAILY
     Route: 048
     Dates: start: 20170111, end: 20170115

REACTIONS (1)
  - Diabetic metabolic decompensation [Recovered/Resolved]

NARRATIVE: CASE EVENT DATE: 20170118
